FAERS Safety Report 17060340 (Version 2)
Quarter: 2019Q4

REPORT INFORMATION
  Report Type: Spontaneous
  Country: CZ (occurrence: CZ)
  Receive Date: 20191121
  Receipt Date: 20191201
  Transmission Date: 20200122
  Serious: Yes (Hospitalization)
  Sender: FDA-Public Use
  Company Number: NVSC2019CZ039936

PATIENT
  Age: 79 Year
  Sex: Female

DRUGS (2)
  1. CYCLOSPORINE. [Suspect]
     Active Substance: CYCLOSPORINE
     Indication: BLEPHARITIS
     Dosage: UNK
     Route: 065
  2. DOXYCYCLINE. [Suspect]
     Active Substance: DOXYCYCLINE
     Indication: BLEPHARITIS
     Dosage: UNK
     Route: 065

REACTIONS (5)
  - Conjunctival scar [Unknown]
  - Drug ineffective [Unknown]
  - Corneal erosion [Unknown]
  - Keratitis [Unknown]
  - Product use in unapproved indication [Unknown]
